FAERS Safety Report 9903659 (Version 2)
Quarter: 2014Q1

REPORT INFORMATION
  Report Type: Spontaneous
  Country: US (occurrence: US)
  Receive Date: 20140217
  Receipt Date: 20140305
  Transmission Date: 20141002
  Serious: Yes (Other)
  Sender: FDA-Public Use
  Company Number: US-RB-063456-14

PATIENT
  Age: 41 Year
  Sex: Female

DRUGS (12)
  1. SUBOXONE FILM [Suspect]
     Dosage: SUBOXONE FILM
     Route: 060
     Dates: start: 2011, end: 201312
  2. SUBOXONE FILM [Suspect]
     Indication: DRUG DEPENDENCE
     Dosage: SUBOXONE FILM; SELF TAPER-DOSING DETAILS UNKNOWN
     Route: 060
     Dates: start: 201401, end: 20140131
  3. HYDROCODONE [Suspect]
     Indication: BACK PAIN
     Dosage: DOSING DETAILS UNKNOWN
     Route: 065
     Dates: start: 201312
  4. HYDROCODONE [Suspect]
     Indication: DRUG WITHDRAWAL SYNDROME
     Dosage: DOSING DETAILS UNKNOWN
     Route: 065
     Dates: start: 201312
  5. CETIRIZINE [Concomitant]
     Indication: MULTIPLE ALLERGIES
     Dosage: DOSING DETAILS NOT PROVIDED
     Route: 048
  6. RESTORIL [Concomitant]
     Indication: INSOMNIA
     Dosage: DOSING DETAILS NOT PROVIDED
     Route: 048
     Dates: end: 201401
  7. RESTORIL [Concomitant]
     Indication: DEPRESSION
     Dosage: DOSING DETAILS NOT PROVIDED
     Route: 048
     Dates: end: 201401
  8. XANAX [Concomitant]
     Indication: ANXIETY
     Dosage: DOSING DETAILS NOT PROVIDED
     Route: 048
  9. XANAX [Concomitant]
     Indication: PANIC ATTACK
     Dosage: DOSING DETAILS NOT PROVIDED
     Route: 048
  10. DEPAKOTE [Concomitant]
     Indication: BIPOLAR DISORDER
     Dosage: DOSING DETAILS UNKNOWN
     Route: 048
  11. NICOTINE [Concomitant]
     Indication: PRODUCT USED FOR UNKNOWN INDICATION
     Dosage: 1/3 PACK OF CIGARETTES DAILY
     Route: 055
  12. TYLENOL PM [Concomitant]
     Indication: PRODUCT USED FOR UNKNOWN INDICATION
     Dosage: DOSING DETAILS UNKNOWN
     Route: 065

REACTIONS (7)
  - Wrong technique in drug usage process [Recovered/Resolved]
  - Foot fracture [Recovered/Resolved]
  - Jaw fracture [Recovered/Resolved]
  - Drug withdrawal syndrome [Not Recovered/Not Resolved]
  - Back pain [Not Recovered/Not Resolved]
  - Drug abuse [Not Recovered/Not Resolved]
  - Intentional underdose [Recovered/Resolved]
